FAERS Safety Report 10062550 (Version 1)
Quarter: 2014Q1

REPORT INFORMATION
  Report Type: Spontaneous
  Country: US (occurrence: None)
  Receive Date: 20140313
  Receipt Date: 20140313
  Transmission Date: 20141002
  Serious: Yes (Other)
  Sender: FDA-Public Use
  Company Number: 1000051818

PATIENT
  Age: 66 Year
  Sex: Female

DRUGS (14)
  1. DALIRESP [Suspect]
     Indication: CHRONIC OBSTRUCTIVE PULMONARY DISEASE
     Route: 048
     Dates: start: 201310, end: 201311
  2. PREDNISONE (PREDNISONE) (PREDNISONE) [Concomitant]
  3. METFORMIN (METFORMIN) [Concomitant]
  4. GLIPIZIDE (GLIPIZIDE) (GLIPIZIDE) [Concomitant]
  5. XANAX (ALPRAZOLAM) (ALPRAZOLAM) [Concomitant]
  6. ALBUTEROL (ALBUTEROL) (ALBUTEROL) [Concomitant]
  7. MUCINEX (GUAIFENESIN) (GUAIFENASIN) [Concomitant]
  8. AZITHROMYCIN (AZITHROMYCIN) (AZITHROMYCIN) [Concomitant]
  9. PROZAC (FLUOXETINE HYDROCHLORIDE) (FLUOXETINE HYDROCHLORIDE) [Concomitant]
  10. CALCIUM +VIT D (CALCIUM D3) (CALCIUM D3) [Concomitant]
  11. PANTOPRAZOLE (PANTOPRAZOLE) (PANTOPRAZOLE) [Concomitant]
  12. ADVAIR (FLUTICASONE,SALMETEROL) (FLUTICASONE, SALMETEROL) [Concomitant]
  13. SEREVENT (SALMETEROL XINAFOATE) (SALMETEROL XINAFOATE) [Concomitant]
  14. SINGULAIR (MONTELUKAST SODIUM )(MONTELUKAST SODIUM) [Concomitant]

REACTIONS (5)
  - Diarrhoea [None]
  - Back pain [None]
  - Anxiety [None]
  - Insomnia [None]
  - Increased upper airway secretion [None]
